FAERS Safety Report 13922884 (Version 1)
Quarter: 2017Q3

REPORT INFORMATION
  Report Type: Spontaneous
  Country: US (occurrence: US)
  Receive Date: 20170830
  Receipt Date: 20170830
  Transmission Date: 20171127
  Serious: No
  Sender: FDA-Public Use
  Company Number: US-TWI PHARMACEUTICAL, INC-2017SCTW000007

PATIENT
  Sex: Male

DRUGS (2)
  1. GUANFACINE. [Suspect]
     Active Substance: GUANFACINE
     Dosage: 1 DF, OD, EVERY MORNING
     Route: 048
     Dates: start: 20170729
  2. GUANFACINE. [Suspect]
     Active Substance: GUANFACINE
     Indication: ATTENTION DEFICIT/HYPERACTIVITY DISORDER
     Dosage: UNK UNK, UNKNOWN
     Route: 065

REACTIONS (3)
  - Product use issue [Unknown]
  - Fatigue [Not Recovered/Not Resolved]
  - Product substitution issue [None]
